FAERS Safety Report 19757357 (Version 2)
Quarter: 2021Q3

REPORT INFORMATION
  Report Type: Spontaneous
  Country: US (occurrence: US)
  Receive Date: 20210827
  Receipt Date: 20210910
  Transmission Date: 20211014
  Serious: Yes (Other)
  Sender: FDA-Public Use
  Company Number: US-TEVA-2021-US-1944606

PATIENT

DRUGS (3)
  1. MANNITOL. [Suspect]
     Active Substance: MANNITOL
     Route: 061
  2. COPAXONE [Suspect]
     Active Substance: GLATIRAMER ACETATE
     Indication: MULTIPLE SCLEROSIS
     Dosage: FORM STRENGTH: UNKNOWN
     Route: 065
     Dates: start: 2000, end: 2007
  3. COPAXONE [Suspect]
     Active Substance: GLATIRAMER ACETATE
     Dosage: FORM STRENGTH: UNKNOWN
     Route: 065
     Dates: start: 2007

REACTIONS (4)
  - Adverse reaction [Unknown]
  - Epistaxis [Unknown]
  - Alopecia [Unknown]
  - Multiple sclerosis [Unknown]

NARRATIVE: CASE EVENT DATE: 2007
